FAERS Safety Report 4913263-0 (Version None)
Quarter: 2006Q1

REPORT INFORMATION
  Report Type: 
  Country: None (occurrence: None)
  Receive Date: 20060210
  Receipt Date: 20060126
  Transmission Date: 20060701
  Serious: Yes (Hospitalization)
  Sender: FDA-Public Use
  Company Number: 97/00245-GBD

PATIENT
  Age: 21 Year
  Sex: Female
  Weight: 51.8915 kg

DRUGS (4)
  1. BETASERON [Suspect]
     Indication: RELAPSING-REMITTING MULTIPLE SCLEROSIS
     Dosage: 0.5 AMP, EVERY 2D, SUBCUTANEOUS
     Route: 058
     Dates: start: 19970528, end: 19970601
  2. LIORESAL [Concomitant]
  3. DECORTIN-H [Concomitant]
  4. RIOPAN [Concomitant]

REACTIONS (8)
  - BURNING SENSATION [None]
  - CONVULSION [None]
  - DELUSIONAL DISORDER, PERSECUTORY TYPE [None]
  - EPILEPSY [None]
  - EXCITABILITY [None]
  - NEUROLOGICAL SYMPTOM [None]
  - RESTLESSNESS [None]
  - SLEEP DISORDER [None]
